FAERS Safety Report 4427132-6 (Version None)
Quarter: 2004Q3

REPORT INFORMATION
  Report Type: 
  Country: None (occurrence: None)
  Receive Date: 20040726
  Receipt Date: 20040519
  Transmission Date: 20050211
  Serious: No
  Sender: FDA-Public Use
  Company Number: USA040465845

PATIENT
  Age: 58 Year
  Sex: Female
  Weight: 86 kg

DRUGS (15)
  1. FORTEO [Suspect]
     Indication: OSTEOPOROSIS
     Dosage: 20 UG DAY
     Dates: start: 20040228, end: 20040427
  2. FOSAMAX [Concomitant]
  3. CALCIUM [Concomitant]
  4. METFORMIN HCL [Concomitant]
  5. SYNTHROID [Concomitant]
  6. ZYRTEC [Concomitant]
  7. GLUCOSAMINE, CHONDROITIN, MSM [Concomitant]
  8. MULTI-VITAMIN [Concomitant]
  9. VITAMIN E [Concomitant]
  10. VITAMIN C [Concomitant]
  11. ASPIRIN [Concomitant]
  12. FLURBIPROFEN [Concomitant]
  13. CHROMIUM [Concomitant]
  14. CALCIUM CITRATE WITH VITAMIN D [Concomitant]
  15. MAGNESIUM [Concomitant]

REACTIONS (13)
  - ALOPECIA [None]
  - ARTHRALGIA [None]
  - ASTHENIA [None]
  - BACK PAIN [None]
  - BLOOD CALCIUM INCREASED [None]
  - BONE PAIN [None]
  - COLONOSCOPY [None]
  - DIFFICULTY IN WALKING [None]
  - MUSCLE TIGHTNESS [None]
  - MUSCULOSKELETAL STIFFNESS [None]
  - MYALGIA [None]
  - PAIN [None]
  - PAIN IN EXTREMITY [None]
